FAERS Safety Report 8797478 (Version 2)
Quarter: 2015Q1

REPORT INFORMATION
  Report Type: Report from Study
  Country: US (occurrence: US)
  Receive Date: 20120919
  Receipt Date: 20150312
  Transmission Date: 20150721
  Serious: Yes (Death, Hospitalization)
  Sender: FDA-Public Use
  Company Number: US-ROCHE-1123127

PATIENT
  Sex: Male

DRUGS (14)
  1. ARANESP [Concomitant]
     Active Substance: DARBEPOETIN ALFA
  2. TYLENOL [Concomitant]
     Active Substance: ACETAMINOPHEN
     Route: 065
  3. ALOXI [Concomitant]
     Active Substance: PALONOSETRON HYDROCHLORIDE
  4. BENADRYL [Concomitant]
     Active Substance: DIPHENHYDRAMINE HYDROCHLORIDE
     Route: 042
  5. ALIMTA [Concomitant]
     Active Substance: PEMETREXED DISODIUM
  6. MORPHINE SULFATE. [Concomitant]
     Active Substance: MORPHINE SULFATE
     Dosage: PRN
     Route: 065
  7. MEGACE [Concomitant]
     Active Substance: MEGESTROL ACETATE
  8. VITAMIN B12 [Concomitant]
     Active Substance: CYANOCOBALAMIN
     Route: 042
  9. AVASTIN [Suspect]
     Active Substance: BEVACIZUMAB
     Indication: LUNG NEOPLASM MALIGNANT
     Route: 042
     Dates: start: 20060706
  10. FOLIC ACID. [Concomitant]
     Active Substance: FOLIC ACID
  11. LEXAPRO [Concomitant]
     Active Substance: ESCITALOPRAM OXALATE
  12. DEXAMETHASONE. [Concomitant]
     Active Substance: DEXAMETHASONE
  13. OXYCONTIN [Concomitant]
     Active Substance: OXYCODONE HYDROCHLORIDE
     Route: 065
  14. KYTRIL [Concomitant]
     Active Substance: GRANISETRON HYDROCHLORIDE
     Route: 065

REACTIONS (16)
  - Nausea [Unknown]
  - Cheilitis [Unknown]
  - Diarrhoea [Unknown]
  - Disease progression [Unknown]
  - Decreased appetite [Unknown]
  - Death [Fatal]
  - Weight decreased [Unknown]
  - Haemorrhoids [Unknown]
  - Oedema [Unknown]
  - Proctalgia [Unknown]
  - Depression [Unknown]
  - Fatigue [Unknown]
  - Off label use [Unknown]
  - Vomiting [Unknown]
  - Pyrexia [Unknown]
  - Constipation [Unknown]
